FAERS Safety Report 15945648 (Version 4)
Quarter: 2019Q2

REPORT INFORMATION
  Report Type: Report from Study
  Country: US (occurrence: US)
  Receive Date: 20190211
  Receipt Date: 20190506
  Transmission Date: 20190711
  Serious: Yes (Other)
  Sender: FDA-Public Use
  Company Number: US-PFIZER INC-2018491796

PATIENT
  Age: 45 Year
  Sex: Female

DRUGS (2)
  1. IBRANCE [Suspect]
     Active Substance: PALBOCICLIB
     Dosage: 100 MG, CYCLIC (DAILY 21 DAYS ON AND 7 DAYS OFF)
     Route: 048
     Dates: start: 20181230
  2. IBRANCE [Suspect]
     Active Substance: PALBOCICLIB
     Indication: BREAST CANCER FEMALE
     Dosage: 125 MG, CYCLIC (DAILY 21 DAYS ON AND 7 DAYS OFF)
     Route: 048
     Dates: start: 20181122, end: 20181218

REACTIONS (12)
  - Leukopenia [Recovering/Resolving]
  - Sneezing [Unknown]
  - Rhinorrhoea [Unknown]
  - Sinus congestion [Not Recovered/Not Resolved]
  - Intentional product misuse [Unknown]
  - Bone marrow failure [Not Recovered/Not Resolved]
  - Sleep disorder [Unknown]
  - Nasopharyngitis [Recovering/Resolving]
  - Headache [Unknown]
  - Arthralgia [Unknown]
  - Cough [Unknown]
  - Product dose omission [Unknown]

NARRATIVE: CASE EVENT DATE: 2018
